FAERS Safety Report 23276668 (Version 2)
Quarter: 2024Q1

REPORT INFORMATION
  Report Type: Report from Study
  Country: CH (occurrence: CH)
  Receive Date: 20231208
  Receipt Date: 20240104
  Transmission Date: 20240410
  Serious: Yes (Hospitalization, Other)
  Sender: FDA-Public Use
  Company Number: CH-BAYER-2023A173467

PATIENT
  Age: 24 Year
  Sex: Female

DRUGS (1)
  1. KYLEENA [Suspect]
     Active Substance: LEVONORGESTREL
     Dosage: 17.5?G/DAY
     Route: 015
     Dates: start: 20230112, end: 20230301

REACTIONS (7)
  - Tubo-ovarian abscess [None]
  - Salpingitis [None]
  - Chronic inflammatory response syndrome [None]
  - Pelvic pain [None]
  - Headache [None]
  - Myalgia [None]
  - Genital infection [None]

NARRATIVE: CASE EVENT DATE: 20230227
